FAERS Safety Report 6597985-4 (Version None)
Quarter: 2010Q1

REPORT INFORMATION
  Report Type: 
  Country: None (occurrence: None)
  Receive Date: 20100223
  Receipt Date: 20091223
  Transmission Date: 20100710
  Serious: No
  Sender: FDA-Public Use
  Company Number: US-ALLERGAN-0917582US

PATIENT
  Age: 41 Year
  Sex: Female

DRUGS (3)
  1. BOTOX COSMETIC [Suspect]
     Indication: SKIN WRINKLING
     Dosage: 31 UNITS, SINGLE
     Dates: start: 20091212, end: 20091212
  2. CELEXA [Concomitant]
  3. PLAQUENIL [Concomitant]

REACTIONS (1)
  - MUSCULOSKELETAL DISORDER [None]
